FAERS Safety Report 4289342-0 (Version None)
Quarter: 2004Q1

REPORT INFORMATION
  Report Type: 
  Country: None (occurrence: None)
  Receive Date: 20040210
  Receipt Date: 20031121
  Transmission Date: 20041129
  Serious: Yes (Disabling)
  Sender: FDA-Public Use
  Company Number: PHEH2003US10774

PATIENT
  Age: 45 Year
  Sex: Female
  Weight: 68 kg

DRUGS (8)
  1. SANDOSTATIN [Suspect]
     Indication: ACROMEGALY
     Dosage: .8 UG, TID
     Route: 058
     Dates: start: 19960101, end: 20030901
  2. SANDOSTATIN LAR [Suspect]
     Indication: ACROMEGALY
     Dosage: 20 MG, Q25 DAYS
     Route: 030
     Dates: start: 19960101, end: 20030701
  3. SANDOSTATIN LAR [Suspect]
     Dosage: 10 MG, QMO
  4. PREDNISONE [Concomitant]
     Dosage: 30 MG, UNK
     Dates: start: 19960101
  5. FLORINEF [Concomitant]
     Dates: start: 19960101
  6. KCL TAB [Concomitant]
     Dates: start: 19960101
  7. ESTRADIOL [Concomitant]
     Dates: start: 19960101
  8. SYNTHROID [Concomitant]
     Dates: start: 19960101

REACTIONS (9)
  - ANAEMIA [None]
  - BLOOD GLUCOSE FLUCTUATION [None]
  - CONSTIPATION [None]
  - DIARRHOEA [None]
  - DYSPEPSIA [None]
  - ERUCTATION [None]
  - MIDDLE INSOMNIA [None]
  - RETCHING [None]
  - WEIGHT DECREASED [None]
